FAERS Safety Report 4430835-0 (Version None)
Quarter: 2004Q3

REPORT INFORMATION
  Report Type: 
  Country: None (occurrence: None)
  Receive Date: 20040823
  Receipt Date: 20031121
  Transmission Date: 20050211
  Serious: Yes (Hospitalization, Disabling, Other)
  Sender: FDA-Public Use
  Company Number: US-MERCK-0311USA02544

PATIENT
  Age: 60 Year
  Sex: Female
  Weight: 102 kg

DRUGS (18)
  1. DARVOCET-N 100 [Concomitant]
     Indication: ARTHRITIS
     Route: 065
     Dates: start: 20000228, end: 20040601
  2. ALBUTEROL [Concomitant]
     Indication: DYSPNOEA
     Route: 065
  3. COMBIVENT [Concomitant]
     Indication: DYSPNOEA
     Route: 065
  4. METAB-O-LITE [Concomitant]
     Route: 065
     Dates: start: 20000101, end: 20010101
  5. NORVASC [Concomitant]
     Indication: HYPERTENSION
     Route: 065
  6. ASPIRIN [Concomitant]
     Route: 065
     Dates: start: 20010701
  7. COREG [Concomitant]
     Indication: CARDIAC FAILURE
     Route: 065
     Dates: start: 20010701, end: 20030201
  8. CEFTIN [Concomitant]
     Indication: INFECTION
     Route: 065
  9. PREMPRO [Concomitant]
     Indication: HORMONE REPLACEMENT THERAPY
     Route: 065
     Dates: start: 20000501
  10. LASIX [Concomitant]
     Indication: OEDEMA PERIPHERAL
     Route: 065
     Dates: start: 20010701
  11. HYDRODIURIL [Concomitant]
     Indication: HYPERTENSION
     Route: 065
  12. PREVACID [Concomitant]
     Indication: GASTRIC DISORDER
     Route: 065
     Dates: start: 19840101
  13. SYNTHROID [Concomitant]
     Indication: HYPOTHYROIDISM
     Route: 065
  14. ZESTRIL [Concomitant]
     Indication: HYPERTENSION
     Route: 065
     Dates: start: 20010801, end: 20010901
  15. CLARITIN [Concomitant]
     Indication: HYPERSENSITIVITY
     Route: 065
  16. ACCUPRIL [Concomitant]
     Indication: HYPERTENSION
     Route: 065
  17. VIOXX [Suspect]
     Indication: RHEUMATOID ARTHRITIS
     Route: 048
     Dates: start: 20000401, end: 20010801
  18. THEOPHYLLINE [Concomitant]
     Indication: DYSPNOEA
     Route: 065
     Dates: start: 20010401

REACTIONS (4)
  - CARDIAC FAILURE CONGESTIVE [None]
  - EMOTIONAL DISORDER [None]
  - MYOCARDIAL INFARCTION [None]
  - RENAL FAILURE [None]
